FAERS Safety Report 8020979-9 (Version None)
Quarter: 2011Q4

REPORT INFORMATION
  Report Type: 
  Country: None (occurrence: None)
  Receive Date: 20111228
  Receipt Date: 20111219
  Transmission Date: 20120403
  Serious: Yes (Hospitalization)
  Sender: FDA-Public Use
  Company Number: DSM-2011-01401

PATIENT
  Age: 42 Year
  Sex: Female

DRUGS (6)
  1. TRINODIOL (ETHINYLESTRADIOL, LEVONORGESTREL) [Concomitant]
  2. ACETAMINOPHEN [Concomitant]
  3. OLMESARTAN MEDOXOMIL [Suspect]
     Indication: HYPERTENSION
     Dosage: 20 MG, ORAL, 40 MG, ORAL
     Route: 048
     Dates: start: 20110513, end: 20110615
  4. OLMESARTAN MEDOXOMIL [Suspect]
     Indication: HYPERTENSION
     Dosage: 20 MG, ORAL, 40 MG, ORAL
     Route: 048
     Dates: start: 20110615
  5. TEMERIT DUO (NEBIVOLOL HYDROCHLORIDE) [Suspect]
     Indication: HYPERTENSION
     Dosage: 5/12.5MG, ORAL, 5/25MG, ORAL
     Route: 048
     Dates: start: 20110514, end: 20110708
  6. TEMERIT DUO (NEBIVOLOL HYDROCHLORIDE) [Suspect]
     Indication: HYPERTENSION
     Dosage: 5/12.5MG, ORAL, 5/25MG, ORAL
     Route: 048
     Dates: start: 20110708, end: 20110922

REACTIONS (7)
  - FATIGUE [None]
  - DRY MOUTH [None]
  - VISUAL ACUITY REDUCED [None]
  - COUGH [None]
  - UNEVALUABLE EVENT [None]
  - SERUM FERRITIN DECREASED [None]
  - DIABETES MELLITUS [None]
